FAERS Safety Report 16244607 (Version 2)
Quarter: 2019Q3

REPORT INFORMATION
  Report Type: Spontaneous
  Country: US (occurrence: US)
  Receive Date: 20190426
  Receipt Date: 20190722
  Transmission Date: 20191004
  Serious: Yes (Hospitalization)
  Sender: FDA-Public Use
  Company Number: US-SA-2019SA111394

PATIENT
  Age: 53 Year
  Sex: Male
  Weight: 83.9 kg

DRUGS (21)
  1. STERILE WATER [Concomitant]
     Active Substance: WATER
     Dosage: 10 ML, UNK
     Route: 042
     Dates: start: 20160812
  2. FABRAZYME [Suspect]
     Active Substance: AGALSIDASE BETA
     Dosage: 80 MG, QOW
     Route: 041
     Dates: start: 20100430
  3. HEPARIN [Concomitant]
     Active Substance: HEPARIN SODIUM
     Dosage: 100 ML, UNK
     Route: 042
     Dates: start: 20160812
  4. NORMAL SALINE [Concomitant]
     Active Substance: SODIUM CHLORIDE
     Indication: FLUSHING
     Dosage: 1 DOSE
     Route: 042
     Dates: start: 20190620
  5. CELLCEPT [Concomitant]
     Active Substance: MYCOPHENOLATE MOFETIL\MYCOPHENOLATE MOFETIL HYDROCHLORIDE
     Dosage: 3 CAPSULES AS DIRECTED
     Route: 048
     Dates: start: 20100429
  6. SODIUM CHLORIDE. [Concomitant]
     Active Substance: SODIUM CHLORIDE
     Indication: FLUSHING
     Dosage: 0.9 %, UNK (1 DOSE)
     Route: 042
     Dates: start: 20190620
  7. ATORVASTATIN [Concomitant]
     Active Substance: ATORVASTATIN
     Dosage: 80 MG, QD
     Route: 048
     Dates: start: 20160504
  8. NORMAL SALINE [Concomitant]
     Active Substance: SODIUM CHLORIDE
     Dosage: 0.9 %, UNK
     Route: 041
     Dates: start: 20160812
  9. STERILE WATER [Concomitant]
     Active Substance: WATER
     Dosage: 1 DOSE
     Route: 042
     Dates: start: 20190620
  10. LOSARTAN. [Concomitant]
     Active Substance: LOSARTAN
     Dosage: 25 MG, QD
     Route: 048
     Dates: start: 20160504
  11. FABRAZYME [Suspect]
     Active Substance: AGALSIDASE BETA
     Indication: FABRY^S DISEASE
     Dosage: 90 MG, QOW
     Route: 041
     Dates: start: 20170727
  12. HEPARIN [Concomitant]
     Active Substance: HEPARIN SODIUM
     Indication: FLUSHING
     Dosage: 100 UN, UNK
     Route: 042
     Dates: start: 20190620
  13. SODIUM CHLORIDE. [Concomitant]
     Active Substance: SODIUM CHLORIDE
     Dosage: 0.9 %, UNK
     Route: 041
     Dates: start: 20160812
  14. EPIPEN [Concomitant]
     Active Substance: EPINEPHRINE
     Dosage: 0.3 MG, PRN
     Route: 030
     Dates: start: 20160812
  15. EPINEPHRINE. [Concomitant]
     Active Substance: EPINEPHRINE
     Indication: ANAPHYLACTIC REACTION
     Dosage: 0.3 MG, PRN
     Route: 030
     Dates: start: 20190620
  16. PLAVIX [Concomitant]
     Active Substance: CLOPIDOGREL BISULFATE
     Dosage: 75 MG, QD
     Route: 048
     Dates: start: 20150218
  17. PROGRAF [Concomitant]
     Active Substance: TACROLIMUS\TACROLIMUS ANHYDROUS
     Dosage: 2 CAPSULES AS DIRECTED
     Route: 048
     Dates: start: 20100429
  18. ASPIRIN [ACETYLSALICYLIC ACID] [Concomitant]
     Active Substance: ASPIRIN
     Dosage: 81 MG, QD
     Route: 048
     Dates: start: 20160812
  19. EPINEPHRINE. [Concomitant]
     Active Substance: EPINEPHRINE
     Dosage: 0.3 MG, PRN
     Route: 030
     Dates: start: 20160818
  20. ASPIRIN [ACETYLSALICYLIC ACID] [Concomitant]
     Active Substance: ASPIRIN
     Dosage: 875 MG, QD
     Route: 048
     Dates: start: 20190215
  21. CUBICIN [Concomitant]
     Active Substance: DAPTOMYCIN
     Dosage: 750 MG, QD
     Route: 042
     Dates: start: 20190620

REACTIONS (3)
  - Amputation [Unknown]
  - Restlessness [Unknown]
  - Blood pressure increased [Unknown]
